FAERS Safety Report 8651161 (Version 2)
Quarter: 2012Q4

REPORT INFORMATION
  Report Type: 
  Country: US (occurrence: US)
  Receive Date: 20120705
  Receipt Date: 20120904
  Transmission Date: 20130627
  Serious: Yes (Other)
  Sender: FDA-Public Use
  Company Number: US-JNJFOC-20120700585

PATIENT
  Age: 45 None
  Sex: Male

DRUGS (9)
  1. INVEGA SUSTENNA [Suspect]
     Indication: SCHIZOAFFECTIVE DISORDER
     Route: 030
     Dates: start: 20120315
  2. LAMICTAL [Concomitant]
     Route: 048
  3. COGENTIN [Concomitant]
     Dosage: 0.5-1 mg tablet twice a day as needed
     Route: 048
  4. CELEXA [Concomitant]
     Dosage: 0.5-1 mg twice a day as needed
     Route: 048
  5. UNKNOWN MEDICATION [Concomitant]
     Route: 048
  6. METFORMIN HYDROCHLORIDE [Concomitant]
     Route: 065
  7. ABILIFY [Concomitant]
     Route: 048
  8. TRICOR [Concomitant]
     Route: 048
  9. LIPITOR [Concomitant]
     Route: 048

REACTIONS (2)
  - Priapism [Recovered/Resolved]
  - Spontaneous penile erection [Recovered/Resolved]
